FAERS Safety Report 9475033 (Version 7)
Quarter: 2014Q2

REPORT INFORMATION
  Report Type: Report from Study
  Country: IE (occurrence: IE)
  Receive Date: 20130824
  Receipt Date: 20140418
  Transmission Date: 20141212
  Serious: Yes (Other)
  Sender: FDA-Public Use
  Company Number: IE-US-EMD SERONO, INC.-7226935

PATIENT
  Age: 40 Year
  Sex: Female

DRUGS (11)
  1. REBIF [Suspect]
     Indication: RELAPSING-REMITTING MULTIPLE SCLEROSIS
     Dosage: TITRATION DOSE
     Route: 058
     Dates: start: 20130723
  2. REBIF [Suspect]
     Indication: SECONDARY PROGRESSIVE MULTIPLE SCLEROSIS
     Route: 058
  3. SERC                               /00034201/ [Concomitant]
     Indication: VERTIGO
  4. SERC                               /00034201/ [Concomitant]
  5. COVERSYL                           /00790701/ [Concomitant]
     Indication: HYPERTENSION
  6. TELFAST                            /01314201/ [Concomitant]
     Indication: ECZEMA
  7. AMLODIPINE [Concomitant]
     Indication: PRODUCT USED FOR UNKNOWN INDICATION
  8. ISTIN [Concomitant]
     Indication: HYPERTENSION
  9. VENTOLIN                           /00139501/ [Concomitant]
     Indication: ASTHMA
  10. BECLAZONE [Concomitant]
     Indication: ASTHMA
  11. AMOXICILLIN [Concomitant]
     Indication: PRODUCT USED FOR UNKNOWN INDICATION
     Dates: start: 20130809

REACTIONS (13)
  - Lower respiratory tract infection [Recovered/Resolved]
  - Palpitations [Unknown]
  - Hypopnoea [Recovered/Resolved]
  - Decreased appetite [Not Recovered/Not Resolved]
  - Asthenia [Recovered/Resolved]
  - Eye pain [Not Recovered/Not Resolved]
  - Feeling hot [Not Recovered/Not Resolved]
  - Malaise [Recovered/Resolved]
  - Hypoaesthesia [Not Recovered/Not Resolved]
  - Muscular weakness [Not Recovered/Not Resolved]
  - Dry eye [Not Recovered/Not Resolved]
  - Injection site bruising [Recovered/Resolved]
  - Off label use [Unknown]
